FAERS Safety Report 11137543 (Version 2)
Quarter: 2017Q4

REPORT INFORMATION
  Report Type: Spontaneous
  Country: US (occurrence: US)
  Receive Date: 20150526
  Receipt Date: 20171211
  Transmission Date: 20180320
  Serious: Yes (Other)
  Sender: FDA-Public Use
  Company Number: US-OTSUKA-2015_000454

PATIENT
  Sex: Male
  Weight: 63 kg

DRUGS (1)
  1. ARIPIPRAZOLE. [Suspect]
     Active Substance: ARIPIPRAZOLE
     Indication: OFF LABEL USE
     Dosage: 15 MG, UNK
     Route: 048
     Dates: start: 201409

REACTIONS (3)
  - Weight decreased [Unknown]
  - Off label use [Unknown]
  - Dementia [Unknown]
